FAERS Safety Report 10012793 (Version 1)
Quarter: 2014Q1

REPORT INFORMATION
  Report Type: Spontaneous
  Country: US (occurrence: US)
  Receive Date: 20140314
  Receipt Date: 20140314
  Transmission Date: 20141002
  Serious: Yes (Other)
  Sender: FDA-Public Use
  Company Number: CHPA2014US003888

PATIENT
  Sex: Male

DRUGS (1)
  1. PRIVATE LABEL STRENGTH UNKNOWN [Suspect]
     Indication: SMOKING CESSATION THERAPY
     Dosage: UNK
     Route: 062
     Dates: start: 20140306

REACTIONS (1)
  - Nicotine dependence [Unknown]
